FAERS Safety Report 6934572-X (Version None)
Quarter: 2010Q3

REPORT INFORMATION
  Report Type: 
  Country: None (occurrence: None)
  Receive Date: 20100820
  Receipt Date: 20100812
  Transmission Date: 20110219
  Serious: Yes (Hospitalization)
  Sender: FDA-Public Use
  Company Number: US-US-EMD SERONO, INC.-7014462

PATIENT
  Sex: Female

DRUGS (2)
  1. REBIF [Suspect]
     Indication: PRODUCT USED FOR UNKNOWN INDICATION
     Route: 058
     Dates: start: 20100602
  2. GABAPENTIN [Concomitant]
     Indication: PAIN

REACTIONS (8)
  - BLOOD GLUCOSE ABNORMAL [None]
  - EMOTIONAL DISORDER [None]
  - INJECTION SITE ERYTHEMA [None]
  - INJECTION SITE HAEMATOMA [None]
  - NAUSEA [None]
  - PAIN [None]
  - URINARY TRACT INFECTION [None]
  - VOMITING [None]
